FAERS Safety Report 6081784-6 (Version None)
Quarter: 2009Q1

REPORT INFORMATION
  Report Type: 
  Country: None (occurrence: None)
  Receive Date: 20090218
  Receipt Date: 20090203
  Transmission Date: 20090719
  Serious: Yes (Hospitalization)
  Sender: FDA-Public Use
  Company Number: ES-BAYER-200912769GPV

PATIENT
  Age: 93 Year
  Sex: Female

DRUGS (6)
  1. ADIRO [Interacting]
     Indication: CARDIOVASCULAR EVENT PROPHYLAXIS
     Route: 048
  2. CIPROCTAL 500 MG/CIPROFLOXACIN HYDROCHLORIDE [Suspect]
     Indication: URINARY TRACT INFECTION
     Route: 048
     Dates: start: 20080926, end: 20081008
  3. SEGURIL 40 MG [Interacting]
     Indication: HYPERTENSION
     Route: 048
  4. BOI-K/ POTASSIUM BICARBONATE [Concomitant]
     Indication: PROPHYLAXIS
     Route: 048
  5. DIGOXIN [Concomitant]
     Indication: PROPHYLAXIS
     Route: 048
  6. OMEPRAZOLE [Concomitant]
     Indication: PROPHYLAXIS
     Route: 048

REACTIONS (1)
  - RENAL TUBULAR NECROSIS [None]
